FAERS Safety Report 6380885-2 (Version None)
Quarter: 2009Q3

REPORT INFORMATION
  Report Type: 
  Country: None (occurrence: None)
  Receive Date: 20090929
  Receipt Date: 20090924
  Transmission Date: 20100115
  Serious: Yes (Hospitalization)
  Sender: FDA-Public Use
  Company Number: A0809337A

PATIENT
  Sex: Male
  Weight: 13 kg

DRUGS (4)
  1. SERETIDE [Suspect]
     Indication: ASTHMA
     Dosage: 2PUFF PER DAY
     Route: 055
     Dates: start: 20090301
  2. KETOTIFEN FUMARATE [Concomitant]
     Dosage: 2.5ML TWICE PER DAY
     Dates: start: 20090301
  3. DEPAKENE [Concomitant]
     Dosage: 5.5ML TWICE PER DAY
     Dates: start: 20040101
  4. SABRIL [Concomitant]
     Dosage: 3.5TAB PER DAY
     Route: 048
     Dates: start: 20040101

REACTIONS (2)
  - APNOEA [None]
  - FATIGUE [None]
